FAERS Safety Report 7084496-5 (Version None)
Quarter: 2010Q4

REPORT INFORMATION
  Report Type: 
  Country: None (occurrence: None)
  Receive Date: 20101104
  Receipt Date: 20101029
  Transmission Date: 20110411
  Serious: Yes (Other)
  Sender: FDA-Public Use
  Company Number: US-PFIZER INC-2010138658

PATIENT

DRUGS (4)
  1. ZYVOX [Suspect]
  2. PROVENTIL /OLD FORM/ [Suspect]
  3. ALBUTEROL [Suspect]
  4. TRAZODONE [Suspect]

REACTIONS (5)
  - ANXIETY [None]
  - FORMICATION [None]
  - INSOMNIA [None]
  - SEROTONIN SYNDROME [None]
  - TREMOR [None]
